FAERS Safety Report 8764000 (Version 1)
Quarter: 2012Q4

REPORT INFORMATION
  Report Type: 
  Country: None (occurrence: US)
  Receive Date: 20120831
  Receipt Date: 20120831
  Transmission Date: 20130627
  Serious: No
  Sender: FDA-Public Use
  Company Number: US-BAUSCH-2012BL001976

PATIENT
  Age: 77 Year
  Sex: Female

DRUGS (1)
  1. CROMOLYN SODIUM [Suspect]
     Indication: NASAL DISCOMFORT
     Dosage: daily dose: 3 SPRAY
     Route: 045
     Dates: start: 20120308, end: 20120309

REACTIONS (2)
  - Nasal oedema [Unknown]
  - Infection [Unknown]
